FAERS Safety Report 17387062 (Version 5)
Quarter: 2022Q4

REPORT INFORMATION
  Report Type: Spontaneous
  Country: US (occurrence: US)
  Receive Date: 20200206
  Receipt Date: 20221014
  Transmission Date: 20230113
  Serious: Yes (Disabling, Other)
  Sender: FDA-Public Use
  Company Number: US-PFIZER INC-2020046285

PATIENT
  Age: 51 Year
  Sex: Male

DRUGS (1)
  1. XELJANZ XR [Suspect]
     Active Substance: TOFACITINIB CITRATE
     Dosage: 11 MG, 1X/DAY (TAKE 1 TABLET BY MOUTH EVERY DAY AS DIRECTED BY PHYSICIAN)
     Route: 048

REACTIONS (5)
  - Rheumatoid arthritis [Unknown]
  - Narcolepsy [Unknown]
  - Pain [Unknown]
  - Gait disturbance [Unknown]
  - Cough [Unknown]
